FAERS Safety Report 9134940 (Version 2)
Quarter: 2013Q2

REPORT INFORMATION
  Report Type: Spontaneous
  Country: IT (occurrence: IT)
  Receive Date: 20130304
  Receipt Date: 20130410
  Transmission Date: 20140414
  Serious: Yes (Hospitalization)
  Sender: FDA-Public Use
  Company Number: IT-PFIZER INC-2013071341

PATIENT
  Age: 70 Year
  Sex: Female

DRUGS (6)
  1. UNASYN [Suspect]
     Indication: SEPSIS
     Dosage: 500 MG +1 G /3.2ML, 3 DOSAGE UNITS, DAILY
     Route: 041
     Dates: start: 20130211, end: 20130214
  2. FIDATO [Concomitant]
     Indication: SEPSIS
     Dosage: 1G/10ML, 1 DOSAGE UNIT
     Route: 002
     Dates: start: 20130128, end: 20130204
  3. LEVOFLOXACINA TEVA [Concomitant]
     Indication: SEPSIS
     Dosage: 500 MG, 2 DOSAGE UNITS
     Route: 048
     Dates: start: 20130207, end: 20130208
  4. FOLINA [Concomitant]
  5. TRIATEC [Concomitant]
  6. NEXIUM [Concomitant]

REACTIONS (1)
  - Hepatitis toxic [Recovering/Resolving]
